FAERS Safety Report 23629491 (Version 4)
Quarter: 2025Q1

REPORT INFORMATION
  Report Type: Spontaneous
  Country: US (occurrence: US)
  Receive Date: 20240314
  Receipt Date: 20250113
  Transmission Date: 20250409
  Serious: Yes (Hospitalization, Other)
  Sender: SANOFI AVENTIS
  Company Number: US-SA-2024SA080492

PATIENT
  Age: 51 Year
  Sex: Female

DRUGS (1)
  1. NEXVIAZYME [Suspect]
     Active Substance: AVALGLUCOSIDASE ALFA-NGPT
     Indication: Glycogen storage disease type II
     Dosage: 1440 MG, QOW
     Route: 042
     Dates: start: 202201

REACTIONS (3)
  - Cellulitis [Unknown]
  - Atrial fibrillation [Unknown]
  - Weight decreased [Unknown]

NARRATIVE: CASE EVENT DATE: 20240226
